FAERS Safety Report 15266275 (Version 4)
Quarter: 2019Q2

REPORT INFORMATION
  Report Type: Spontaneous
  Country: US (occurrence: US)
  Receive Date: 20180810
  Receipt Date: 20190610
  Transmission Date: 20190711
  Serious: Yes (Other)
  Sender: FDA-Public Use
  Company Number: US-PFIZER INC-2018320592

PATIENT
  Age: 47 Year
  Sex: Male

DRUGS (4)
  1. DEPO-MEDROL [Suspect]
     Active Substance: METHYLPREDNISOLONE ACETATE
     Indication: SEASONAL ALLERGY
     Dosage: 40 MG, UNK
     Route: 030
     Dates: start: 20170824
  2. DEPO-MEDROL [Suspect]
     Active Substance: METHYLPREDNISOLONE ACETATE
     Indication: INFECTION
  3. DEPO-MEDROL [Suspect]
     Active Substance: METHYLPREDNISOLONE ACETATE
     Indication: PAIN IN EXTREMITY
  4. ZYRTEC [Concomitant]
     Active Substance: CETIRIZINE HYDROCHLORIDE
     Indication: SEASONAL ALLERGY
     Dosage: UNK

REACTIONS (7)
  - Abscess [Unknown]
  - Staphylococcal infection [Unknown]
  - Cellulitis [Unknown]
  - Scar [Not Recovered/Not Resolved]
  - Product complaint [Unknown]
  - Necrotising fasciitis [Unknown]
  - Suspected product contamination [Unknown]

NARRATIVE: CASE EVENT DATE: 20170824
